FAERS Safety Report 25676718 (Version 1)
Quarter: 2025Q3

REPORT INFORMATION
  Report Type: Report from Study
  Country: US (occurrence: US)
  Receive Date: 20250813
  Receipt Date: 20250813
  Transmission Date: 20251021
  Serious: Yes (Hospitalization, Other)
  Sender: AGIOS PHARMACEUTICALS
  Company Number: US-AGIOS-2508US04416

PATIENT
  Sex: Male
  Weight: 66.984 kg

DRUGS (1)
  1. MITAPIVAT [Suspect]
     Active Substance: MITAPIVAT
     Indication: Sickle cell disease
     Route: 048
     Dates: start: 20250415

REACTIONS (3)
  - Rheumatoid arthritis [Not Recovered/Not Resolved]
  - Product dose omission issue [Not Recovered/Not Resolved]
  - Off label use [Unknown]
